FAERS Safety Report 8371346-X (Version None)
Quarter: 2012Q2

REPORT INFORMATION
  Report Type: 
  Country: None (occurrence: None)
  Receive Date: 20120518
  Receipt Date: 20120517
  Transmission Date: 20120825
  Serious: Yes (Other)
  Sender: FDA-Public Use
  Company Number: US-BAYER-2012-048738

PATIENT
  Age: 59 Year
  Sex: Female

DRUGS (1)
  1. GADAVIST [Suspect]
     Indication: NUCLEAR MAGNETIC RESONANCE IMAGING BRAIN
     Dosage: 7.5 ML, ONCE
     Dates: start: 20120516, end: 20120516

REACTIONS (4)
  - LOSS OF CONSCIOUSNESS [None]
  - CHEST PAIN [None]
  - BURNING SENSATION [None]
  - URTICARIA [None]
